FAERS Safety Report 4595864-5 (Version None)
Quarter: 2005Q1

REPORT INFORMATION
  Report Type: 
  Country: None (occurrence: None)
  Receive Date: 20050302
  Receipt Date: 20050225
  Transmission Date: 20050727
  Serious: Yes (Other)
  Sender: FDA-Public Use
  Company Number: 200511711GDDC

PATIENT
  Sex: Male
  Weight: 70 kg

DRUGS (4)
  1. LANTUS [Suspect]
     Indication: DIABETES MELLITUS INSULIN-DEPENDENT
     Route: 058
     Dates: start: 20040623, end: 20050209
  2. HUMALOG [Concomitant]
     Indication: DIABETES MELLITUS
     Dosage: DOSE UNIT: UNITS
     Route: 058
  3. SULINDAC [Concomitant]
  4. AMITRIPTYLINE [Concomitant]
     Route: 048

REACTIONS (1)
  - SPERMATOZOA ABNORMAL [None]
